FAERS Safety Report 25331178 (Version 1)
Quarter: 2025Q2

REPORT INFORMATION
  Report Type: Spontaneous
  Country: US (occurrence: None)
  Receive Date: 20250517
  Receipt Date: 20250517
  Transmission Date: 20250716
  Serious: Yes (Disabling)
  Sender: FDA-CTU
  Company Number: None

PATIENT
  Age: 65 Year
  Sex: Female
  Weight: 95.4 kg

DRUGS (11)
  1. ZETIA [Suspect]
     Active Substance: EZETIMIBE
     Indication: Blood cholesterol increased
     Dosage: 1 TABLET DAILY ORAL
     Route: 048
     Dates: start: 20250501, end: 20250506
  2. CLONIDINE [Concomitant]
     Active Substance: CLONIDINE
  3. BUPROPION HYDROCHLORIDE [Concomitant]
     Active Substance: BUPROPION HYDROCHLORIDE
  4. Areds 2+ Multi Vitamin [Concomitant]
  5. NordicAlgae Omega [Concomitant]
  6. Omega 2/day Nature Made [Concomitant]
  7. B-Complex with C 1/DAY NATURE MADE [Concomitant]
  8. VITAMIN D3 [Concomitant]
     Active Substance: CHOLECALCIFEROL
  9. Walgreens Cranberry plus [Concomitant]
  10. VITAMIN C [Concomitant]
     Active Substance: ASCORBIC ACID
  11. Pacran Natural Cranberry [Concomitant]

REACTIONS (1)
  - Herpes zoster [None]

NARRATIVE: CASE EVENT DATE: 20250508
